FAERS Safety Report 4810076-5 (Version None)
Quarter: 2005Q4

REPORT INFORMATION
  Report Type: 
  Country: None (occurrence: None)
  Receive Date: 20051026
  Receipt Date: 20051019
  Transmission Date: 20060501
  Serious: Yes (Hospitalization, Other)
  Sender: FDA-Public Use
  Company Number: PHBS2005IR15466

PATIENT
  Age: 63 Year
  Sex: Male

DRUGS (3)
  1. AZATHIOPRINE [Suspect]
     Indication: RENAL TRANSPLANT
  2. PREDNISOLONE [Suspect]
     Indication: RENAL TRANSPLANT
  3. CYCLOSPORINE [Suspect]
     Indication: RENAL TRANSPLANT

REACTIONS (5)
  - BLOOD CREATININE INCREASED [None]
  - CORONARY ARTERY SURGERY [None]
  - HAEMODIALYSIS [None]
  - KAPOSI'S SARCOMA [None]
  - RENAL FAILURE CHRONIC [None]
